FAERS Safety Report 14015928 (Version 1)
Quarter: 2017Q3

REPORT INFORMATION
  Report Type: Other
  Country: CA (occurrence: CA)
  Receive Date: 20170927
  Receipt Date: 20170927
  Transmission Date: 20171128
  Serious: Yes (Hospitalization)
  Sender: FDA-Public Use
  Company Number: CA-APOTEX-2017AP018717

PATIENT
  Age: 83 Year
  Sex: Male

DRUGS (1)
  1. APO-GABAPENTIN CAPSULES [Suspect]
     Active Substance: GABAPENTIN
     Indication: NEUROPATHY PERIPHERAL
     Dosage: 300 MG, BID
     Route: 048

REACTIONS (2)
  - Blister [Recovering/Resolving]
  - Photosensitivity reaction [Recovering/Resolving]
